FAERS Safety Report 21461984 (Version 4)
Quarter: 2025Q3

REPORT INFORMATION
  Report Type: Spontaneous
  Country: EU (occurrence: EU)
  Receive Date: 20221015
  Receipt Date: 20250807
  Transmission Date: 20251021
  Serious: Yes (Hospitalization)
  Sender: AMGEN
  Company Number: EU-AMGEN-AUTSP2022174004

PATIENT
  Age: 42 Year
  Sex: Male
  Weight: 97.3 kg

DRUGS (8)
  1. REPATHA [Suspect]
     Active Substance: EVOLOCUMAB
     Indication: Dyslipidaemia
     Dosage: 140 MILLIGRAM, Q2WK
     Route: 058
     Dates: start: 201803, end: 20211008
  2. REPATHA [Suspect]
     Active Substance: EVOLOCUMAB
     Indication: Hyperlipidaemia
  3. PELACARSEN [Suspect]
     Active Substance: PELACARSEN
     Indication: Cardiovascular disorder
     Route: 058
     Dates: start: 20200928
  4. ASPIRIN [Concomitant]
     Active Substance: ASPIRIN
     Dates: start: 2017
  5. RAMIPRIL [Concomitant]
     Active Substance: RAMIPRIL
     Dates: start: 2017, end: 20250130
  6. EZETIMIBE [Concomitant]
     Active Substance: EZETIMIBE
     Dates: start: 2017
  7. ALLEGRA [Concomitant]
     Active Substance: FEXOFENADINE HYDROCHLORIDE
     Dates: start: 202006, end: 20230830
  8. ENOXAPARIN SODIUM [Concomitant]
     Active Substance: ENOXAPARIN SODIUM
     Indication: Thrombosis prophylaxis

REACTIONS (3)
  - Tendon rupture [Recovered/Resolved]
  - Goitre [Not Recovered/Not Resolved]
  - Therapy interrupted [Unknown]

NARRATIVE: CASE EVENT DATE: 20180501
